FAERS Safety Report 14991234 (Version 1)
Quarter: 2018Q2

REPORT INFORMATION
  Report Type: Spontaneous
  Country: GB (occurrence: GB)
  Receive Date: 20180608
  Receipt Date: 20180608
  Transmission Date: 20180711
  Serious: Yes (Other)
  Sender: FDA-Public Use
  Company Number: GB-TEVA-2018-GB-903539

PATIENT
  Age: 67 Year
  Sex: Female
  Weight: 65 kg

DRUGS (1)
  1. ACICLOVIR [Suspect]
     Active Substance: ACYCLOVIR
     Indication: ENCEPHALITIS
     Route: 042
     Dates: start: 20180312, end: 20180325

REACTIONS (7)
  - Oedema [Unknown]
  - Seizure [Unknown]
  - Thrombophlebitis [Unknown]
  - Crystal nephropathy [Recovered/Resolved with Sequelae]
  - Confusional state [Unknown]
  - Acute kidney injury [Unknown]
  - Renal failure [Recovered/Resolved with Sequelae]

NARRATIVE: CASE EVENT DATE: 20180323
